FAERS Safety Report 8312632-9 (Version None)
Quarter: 2012Q2

REPORT INFORMATION
  Report Type: 
  Country: None (occurrence: None)
  Receive Date: 20120424
  Receipt Date: 20120418
  Transmission Date: 20120825
  Serious: Yes (Disabling)
  Sender: FDA-Public Use
  Company Number: USA/USA/12/0023978

PATIENT
  Age: 54 Year
  Sex: Female
  Weight: 127.0072 kg

DRUGS (2)
  1. CALCITRIOL [Concomitant]
  2. CIPROFLOXACIN [Suspect]
     Indication: URINARY TRACT INFECTION
     Dosage: 500 MG, 1 IN 1 D, ORAL
     Route: 048
     Dates: start: 20120411, end: 20120417

REACTIONS (5)
  - PARAESTHESIA [None]
  - PAIN [None]
  - PRURITUS [None]
  - GAIT DISTURBANCE [None]
  - OROPHARYNGEAL PAIN [None]
